FAERS Safety Report 16284576 (Version 2)
Quarter: 2019Q2

REPORT INFORMATION
  Report Type: Report from Study
  Country: CN (occurrence: CN)
  Receive Date: 20190508
  Receipt Date: 20190513
  Transmission Date: 20190711
  Serious: Yes (Hospitalization)
  Sender: FDA-Public Use
  Company Number: CN-JIANGSU HENGRUI MEDICINE CO., LTD.-2066777

PATIENT
  Age: 64 Year
  Sex: Female
  Weight: 71 kg

DRUGS (8)
  1. ADALAT [Concomitant]
     Active Substance: NIFEDIPINE
  2. TRASTUZUMAB. [Suspect]
     Active Substance: TRASTUZUMAB
     Dates: end: 20190306
  3. TRIMETAZIDINE [Concomitant]
     Active Substance: TRIMETAZIDINE
  4. SOTALOL. [Concomitant]
     Active Substance: SOTALOL
  5. COAPROVEL [Concomitant]
     Active Substance: HYDROCHLOROTHIAZIDE\IRBESARTAN
  6. BLTN [PYROTINIB] [Suspect]
     Active Substance: PYROTINIB
     Dates: start: 20181226, end: 20190306
  7. DOCETAXEL INJECTION USP, 20 MG/0.5 ML, SINGLE-DOSE VIAL, TWO-VIAL FORM [Suspect]
     Active Substance: DOCETAXEL
     Indication: HER-2 POSITIVE BREAST CANCER
     Dates: start: 20181226, end: 20190306
  8. COENZYME Q10 [Concomitant]
     Active Substance: UBIDECARENONE

REACTIONS (1)
  - Pneumonia [Not Recovered/Not Resolved]

NARRATIVE: CASE EVENT DATE: 20190424
